FAERS Safety Report 19732571 (Version 1)
Quarter: 2021Q3

REPORT INFORMATION
  Report Type: Report from Study
  Country: None (occurrence: BR)
  Receive Date: 20210822
  Receipt Date: 20210822
  Transmission Date: 20211014
  Serious: Yes (Hospitalization, Other)
  Sender: FDA-Public Use
  Company Number: BR-ABBVIE-21K-020-4045424-00

PATIENT
  Age: 44 Year
  Sex: Female
  Weight: 41 kg

DRUGS (2)
  1. HUMIRA [Suspect]
     Active Substance: ADALIMUMAB
     Indication: CROHN^S DISEASE
     Route: 058
     Dates: start: 20191128
  2. HUMIRA [Suspect]
     Active Substance: ADALIMUMAB
     Route: 058
     Dates: start: 202001

REACTIONS (7)
  - Hospitalisation [Recovered/Resolved]
  - Pain [Recovered/Resolved]
  - Abdominal distension [Unknown]
  - Vomiting [Unknown]
  - Gastrointestinal pain [Unknown]
  - Gastrointestinal inflammation [Recovering/Resolving]
  - Gastrointestinal inflammation [Recovering/Resolving]

NARRATIVE: CASE EVENT DATE: 20200104
